FAERS Safety Report 22110621 (Version 1)
Quarter: 2023Q1

REPORT INFORMATION
  Report Type: Spontaneous
  Country: US (occurrence: None)
  Receive Date: 20230317
  Receipt Date: 20230317
  Transmission Date: 20230418
  Serious: No
  Sender: FDA-Public Use
  Company Number: None

PATIENT
  Age: 36 Year
  Sex: Female
  Weight: 63.5 kg

DRUGS (6)
  1. GLATIRAMER ACETATE [Suspect]
     Active Substance: GLATIRAMER ACETATE
     Indication: Multiple sclerosis
     Dosage: INJECTION THREE TIMES PER WEEK GIVEN INTO/ UNDER THE SKIN?
     Route: 058
     Dates: start: 20221208
  2. VITAMIN B12 [Concomitant]
     Active Substance: CYANOCOBALAMIN
  3. VITAMIN B [Concomitant]
     Active Substance: VITAMIN B
  4. VITAMIN D [Concomitant]
     Active Substance: VITAMIN D NOS
  5. FISH OIL [Concomitant]
     Active Substance: FISH OIL
  6. PRE-NATAL VITAMIN [Concomitant]

REACTIONS (5)
  - Injection site swelling [None]
  - Injection site pruritus [None]
  - Injection site pain [None]
  - Exposure during pregnancy [None]
  - Injection site mass [None]

NARRATIVE: CASE EVENT DATE: 20221208
